FAERS Safety Report 9006808 (Version 1)
Quarter: 2013Q1

REPORT INFORMATION
  Report Type: Spontaneous
  Country: US (occurrence: US)
  Receive Date: 20130110
  Receipt Date: 20130110
  Transmission Date: 20140127
  Serious: Yes (Other)
  Sender: FDA-Public Use
  Company Number: US-009507513-1301USA002448

PATIENT
  Age: 6 Year
  Sex: Male

DRUGS (3)
  1. SINGULAIR [Suspect]
     Indication: ASTHMA
     Dosage: 5 MG, QD
     Route: 048
  2. FLIXOTIDE [Suspect]
     Dosage: 2 PUFF BID INHALATION
     Route: 055
  3. ALBUTEROL [Concomitant]

REACTIONS (6)
  - Vomiting [Unknown]
  - Pain in extremity [Unknown]
  - Neck pain [Unknown]
  - Hyperhidrosis [Unknown]
  - Headache [Unknown]
  - Arthralgia [Unknown]
